FAERS Safety Report 22281869 (Version 1)
Quarter: 2023Q2

REPORT INFORMATION
  Report Type: Report from Study
  Country: CN (occurrence: CN)
  Receive Date: 20230504
  Receipt Date: 20230504
  Transmission Date: 20230722
  Serious: Yes (Hospitalization)
  Sender: FDA-Public Use
  Company Number: CN-002147023-NVSC2023CN100504

PATIENT
  Age: 74 Year
  Sex: Female
  Weight: 61.6 kg

DRUGS (8)
  1. LETROZOLE [Suspect]
     Active Substance: LETROZOLE
     Indication: HER2 negative breast cancer
     Dosage: 2.5 MG, (DAILY), QD
     Route: 048
     Dates: start: 20190702
  2. PLACEBO [Suspect]
     Active Substance: UNSPECIFIED INGREDIENT
     Indication: HER2 negative breast cancer
     Dosage: UNK
     Route: 048
     Dates: start: 20190702, end: 20220407
  3. INSULIN GLARGINE [Concomitant]
     Active Substance: INSULIN GLARGINE
     Indication: Diabetes mellitus
     Dosage: UNK
     Route: 065
     Dates: start: 201903
  4. CELECOXIB [Concomitant]
     Active Substance: CELECOXIB
     Indication: Bone pain
     Dosage: UNK
     Route: 065
     Dates: start: 20200520
  5. LINAGLIPTIN [Concomitant]
     Active Substance: LINAGLIPTIN
     Indication: Diabetes mellitus
     Dosage: UNK
     Route: 065
     Dates: start: 20211012
  6. PAMIDRONATE DISODIUM [Concomitant]
     Active Substance: PAMIDRONATE DISODIUM
     Indication: Bone cancer metastatic
     Dosage: UNK
     Route: 065
     Dates: start: 20220326, end: 20220326
  7. PAMIDRONATE DISODIUM [Concomitant]
     Active Substance: PAMIDRONATE DISODIUM
     Dosage: UNK
     Route: 065
     Dates: start: 20220328, end: 20220328
  8. LEUCOGEN [Concomitant]
     Active Substance: LEUCOGEN
     Indication: Anaemia
     Dosage: UNK
     Route: 065
     Dates: start: 20220330, end: 20220408

REACTIONS (1)
  - Anaemia [Not Recovered/Not Resolved]

NARRATIVE: CASE EVENT DATE: 20220406
